FAERS Safety Report 6111285-8 (Version None)
Quarter: 2009Q1

REPORT INFORMATION
  Report Type: 
  Country: None (occurrence: None)
  Receive Date: 20090309
  Receipt Date: 20090302
  Transmission Date: 20090719
  Serious: Yes (Death)
  Sender: FDA-Public Use
  Company Number: DSJ-2009-02616

PATIENT
  Age: 76 Year
  Sex: Female
  Weight: 70 kg

DRUGS (9)
  1. OLMESARTAN MEDOXOMIL [Suspect]
     Indication: ESSENTIAL HYPERTENSION
     Dosage: 20 MG (20 MG, 1 IN 1 D), PER ORAL
     Route: 048
     Dates: start: 20060314, end: 20060404
  2. TENORMIN [Concomitant]
  3. ALLELOCK (OLOPATADINE HYDROCHLORIDE) (OLOPATADINE HYDROCHLORIDE) [Concomitant]
  4. ATELEC (CILNIDIPINE) (CILNIDIPINE) [Concomitant]
  5. MEVALOTIN (PRAVASTATIN SODIUM) (PRAVASTATIN SODIUM) [Concomitant]
  6. PURSENNID (SENNA ALEXADRINA LEAF) (SENNA ALEXANDRINA LEAF) [Concomitant]
  7. MARZULENE (SODIUM GUALENATE) (SODIUM GUALENATE) [Concomitant]
  8. MYSLEE (ZOLPIDEM TARTRATE) (ZOLPIDEM TARTRATE) [Concomitant]
  9. LOXONIN (LOXOPROFEN SODIUM) (TABLET) (LOXOPROFEN SODIUM) [Concomitant]

REACTIONS (1)
  - DEATH [None]
